FAERS Safety Report 21145966 (Version 1)
Quarter: 2022Q3

REPORT INFORMATION
  Report Type: Spontaneous
  Country: JP (occurrence: JP)
  Receive Date: 20220729
  Receipt Date: 20220729
  Transmission Date: 20221027
  Serious: Yes (Other)
  Sender: FDA-Public Use
  Company Number: JP-NBI-S202200173BIPI

PATIENT
  Age: 76 Year
  Sex: Male

DRUGS (1)
  1. OFEV [Suspect]
     Active Substance: NINTEDANIB
     Indication: Idiopathic pulmonary fibrosis
     Route: 065

REACTIONS (5)
  - Idiopathic pulmonary fibrosis [Unknown]
  - Idiopathic pulmonary fibrosis [Unknown]
  - Idiopathic pulmonary fibrosis [Unknown]
  - Pyrexia [Unknown]
  - C-reactive protein increased [Unknown]
